FAERS Safety Report 6626466-4 (Version None)
Quarter: 2010Q1

REPORT INFORMATION
  Report Type: 
  Country: None (occurrence: None)
  Receive Date: 20100310
  Receipt Date: 20100301
  Transmission Date: 20100710
  Serious: Yes (Death)
  Sender: FDA-Public Use
  Company Number: GB-GENENTECH-298881

PATIENT
  Sex: Female

DRUGS (1)
  1. LUCENTIS [Suspect]
     Indication: MACULAR DEGENERATION
     Dosage: 5 MG, UNK
     Route: 031
     Dates: start: 20090626, end: 20090825

REACTIONS (2)
  - BRONCHOPNEUMONIA [None]
  - LUNG NEOPLASM MALIGNANT [None]
